FAERS Safety Report 9972389 (Version 1)
Quarter: 2014Q1

REPORT INFORMATION
  Report Type: Spontaneous
  Country: US (occurrence: None)
  Receive Date: 20140305
  Receipt Date: 20140305
  Transmission Date: 20141002
  Serious: Yes (Hospitalization, Other)
  Sender: FDA-Public Use
  Company Number: None

PATIENT
  Age: 52 Year
  Sex: Female
  Weight: 107 kg

DRUGS (15)
  1. PRASUGREL [Suspect]
     Indication: MYOCARDIAL INFARCTION
     Route: 048
     Dates: start: 20131212, end: 20140105
  2. PRASUGREL [Suspect]
     Indication: PERCUTANEOUS CORONARY INTERVENTION
     Route: 048
     Dates: start: 20131212, end: 20140105
  3. PRASUGREL [Suspect]
     Indication: CATHETERISATION CARDIAC
     Route: 048
     Dates: start: 20131212, end: 20140105
  4. CARVEDILOL [Concomitant]
  5. ESOMEPRAZOLE [Concomitant]
  6. FERROUS FUMARATE [Concomitant]
  7. FUROSEMIDE [Concomitant]
  8. GABAPENTIN [Concomitant]
  9. INSULIN NPH/REGULAR [Concomitant]
  10. LISINOPRIL [Concomitant]
  11. NITROGLYCERIN SUBLINGUAL [Concomitant]
  12. SERTRALINE [Concomitant]
  13. ALBUTEROL [Concomitant]
  14. AMLODIPINE [Concomitant]
  15. ATORVASTATIN [Concomitant]

REACTIONS (3)
  - Chest pain [None]
  - Musculoskeletal pain [None]
  - Angina unstable [None]
